FAERS Safety Report 7716181-8 (Version None)
Quarter: 2011Q3

REPORT INFORMATION
  Report Type: 
  Country: None (occurrence: None)
  Receive Date: 20110823
  Receipt Date: 20110812
  Transmission Date: 20111222
  Serious: Yes (Hospitalization)
  Sender: FDA-Public Use
  Company Number: 2009003783

PATIENT
  Age: 58 Year
  Sex: Male

DRUGS (9)
  1. ERLOTINIB HYDROCHLORIDE [Suspect]
     Indication: LUNG CARCINOMA CELL TYPE UNSPECIFIED STAGE 0
     Dosage: ORAL
     Route: 048
     Dates: start: 20091105
  2. ALBUTEROL SULATE [Concomitant]
  3. FERROUS SULFATE TAB [Concomitant]
  4. METOCLOPRAMIDE [Concomitant]
  5. CARBOPLATIN [Suspect]
     Indication: LUNG NEOPLASM MALIGNANT
     Dosage: 700 MG, /D,. IV NOS
     Route: 042
     Dates: start: 20091013, end: 20091125
  6. IPRATROPIUM BROMIDE [Concomitant]
  7. MULTI-VITAMIN [Concomitant]
  8. GEMCITABINE [Suspect]
     Indication: LUNG NEOPLASM MALIGNANT
     Dosage: 2 G, /D, IV NOS
     Route: 042
     Dates: start: 20091202
  9. GEMCITABINE [Suspect]
     Indication: LUNG NEOPLASM MALIGNANT
     Dosage: 2 G, /D, IV NOS
     Route: 042
     Dates: start: 20091013, end: 20091125

REACTIONS (4)
  - STOMATITIS [None]
  - ANAEMIA [None]
  - DYSPHAGIA [None]
  - DECREASED APPETITE [None]
